FAERS Safety Report 18380686 (Version 2)
Quarter: 2020Q4

REPORT INFORMATION
  Report Type: Spontaneous
  Country: US (occurrence: US)
  Receive Date: 20201013
  Receipt Date: 20201016
  Transmission Date: 20210114
  Serious: No
  Sender: FDA-Public Use
  Company Number: US-009507513-2010USA002246

PATIENT
  Sex: Female

DRUGS (1)
  1. NEXPLANON [Suspect]
     Active Substance: ETONOGESTREL
     Dosage: 1 ROD

REACTIONS (5)
  - Complication of device removal [Not Recovered/Not Resolved]
  - Device breakage [Not Recovered/Not Resolved]
  - Headache [Unknown]
  - Device issue [Not Recovered/Not Resolved]
  - Complication associated with device [Unknown]

NARRATIVE: CASE EVENT DATE: 20201005
